FAERS Safety Report 14454408 (Version 1)
Quarter: 2018Q1

REPORT INFORMATION
  Report Type: Spontaneous
  Country: US (occurrence: US)
  Receive Date: 20180129
  Receipt Date: 20180129
  Transmission Date: 20180509
  Serious: No
  Sender: FDA-Public Use
  Company Number: US-TEVA-2018-US-851349

PATIENT
  Sex: Female

DRUGS (1)
  1. FAMCICLOVIR. [Suspect]
     Active Substance: FAMCICLOVIR
     Indication: ANTIVIRAL TREATMENT
     Route: 065
     Dates: start: 2015

REACTIONS (6)
  - Abdominal discomfort [Unknown]
  - Fatigue [Unknown]
  - Product size issue [Unknown]
  - Product physical issue [Unknown]
  - Gastritis [Unknown]
  - Dizziness [Unknown]
